FAERS Safety Report 26129014 (Version 1)
Quarter: 2025Q4

REPORT INFORMATION
  Report Type: Report from Study
  Country: PE (occurrence: PE)
  Receive Date: 20251208
  Receipt Date: 20251208
  Transmission Date: 20260118
  Serious: Yes (Other)
  Sender: ROCHE
  Company Number: PE-ROCHE-10000448284

PATIENT
  Age: 54 Year
  Sex: Female

DRUGS (2)
  1. ACTEMRA [Suspect]
     Active Substance: TOCILIZUMAB
     Indication: Rheumatoid arthritis
     Dosage: APPLY ONE AMPOULE SUBCUTANEOUSLY EVERY 10 DAYS.
     Route: 058
  2. ETORICOXIB [Concomitant]
     Active Substance: ETORICOXIB
     Indication: Product used for unknown indication
     Route: 048

REACTIONS (3)
  - Product prescribing error [Unknown]
  - Chronic kidney disease [Unknown]
  - Arthropathy [Unknown]
